FAERS Safety Report 4533419-9 (Version None)
Quarter: 2004Q4

REPORT INFORMATION
  Report Type: 
  Country: None (occurrence: None)
  Receive Date: 20041221
  Receipt Date: 20041210
  Transmission Date: 20050328
  Serious: Yes (Hospitalization)
  Sender: FDA-Public Use
  Company Number: FR-ROCHE-389041

PATIENT
  Age: 63 Year
  Sex: Female
  Weight: 60 kg

DRUGS (2)
  1. XELODA [Suspect]
     Indication: BREAST CANCER
     Route: 048
     Dates: start: 20040830, end: 20040913
  2. NAVELBINE [Suspect]
     Indication: DRUG USE FOR UNKNOWN INDICATION
     Dosage: GIVEN ON DAY ONE AND DAY EIGHT. GIVEN IN THE CONTEXT OF A XELONAV PROTOCOL
     Route: 048
     Dates: start: 20040830

REACTIONS (2)
  - FEBRILE BONE MARROW APLASIA [None]
  - PULMONARY EMBOLISM [None]
